FAERS Safety Report 7508486-0 (Version None)
Quarter: 2011Q2

REPORT INFORMATION
  Report Type: 
  Country: None (occurrence: None)
  Receive Date: 20110527
  Receipt Date: 20110524
  Transmission Date: 20111010
  Serious: No
  Sender: FDA-Public Use
  Company Number: US-PFIZER INC-2011111803

PATIENT
  Sex: Female

DRUGS (1)
  1. NAVANE [Suspect]
     Dosage: UNK

REACTIONS (1)
  - PAIN [None]
